FAERS Safety Report 7395642-8 (Version None)
Quarter: 2011Q2

REPORT INFORMATION
  Report Type: 
  Country: None (occurrence: None)
  Receive Date: 20110405
  Receipt Date: 20110330
  Transmission Date: 20111010
  Serious: Yes (Death, Other)
  Sender: FDA-Public Use
  Company Number: JP-PFIZER INC-2011068829

PATIENT
  Age: 61 Year
  Sex: Male

DRUGS (12)
  1. PARIET [Concomitant]
     Dosage: UNK
     Route: 048
  2. KINEDAK [Concomitant]
     Dosage: UNK
     Route: 048
  3. LASIX [Concomitant]
     Dosage: UNK
     Route: 048
  4. FERROUS CITRATE [Concomitant]
     Dosage: UNK
     Route: 048
  5. BENZALIN [Concomitant]
     Dosage: UNK
     Route: 048
  6. METHYCOBAL [Concomitant]
     Dosage: UNK
  7. RISPERDAL [Concomitant]
     Dosage: UNK
     Route: 048
  8. CALONAL [Concomitant]
     Dosage: UNK
     Route: 048
  9. LYRICA [Suspect]
     Indication: NEURALGIA
     Dosage: 75 MG, 1X/DAY
     Route: 048
     Dates: start: 20110319, end: 20110321
  10. PERSANTIN [Concomitant]
     Dosage: UNK
     Route: 048
  11. AKINETON [Concomitant]
     Dosage: UNK
     Route: 048
  12. SELBEX [Concomitant]
     Dosage: UNK
     Route: 048

REACTIONS (9)
  - PLEURAL EFFUSION [None]
  - URINE OUTPUT DECREASED [None]
  - RENAL FAILURE [None]
  - ELECTROLYTE IMBALANCE [None]
  - CARDIAC FAILURE [None]
  - ASCITES [None]
  - SOMNOLENCE [None]
  - WEIGHT INCREASED [None]
  - OEDEMA [None]
